FAERS Safety Report 5212407-3 (Version None)
Quarter: 2007Q1

REPORT INFORMATION
  Report Type: 
  Country: None (occurrence: None)
  Receive Date: 20070118
  Receipt Date: 20070109
  Transmission Date: 20070707
  Serious: Yes (Hospitalization)
  Sender: FDA-Public Use
  Company Number: JP-PFIZER INC-2006153517

PATIENT
  Sex: Female
  Weight: 58.6 kg

DRUGS (8)
  1. LIPITOR [Suspect]
     Route: 048
     Dates: start: 20050222, end: 20061121
  2. MEVALOTIN [Concomitant]
     Route: 048
  3. DRUG, UNSPECIFIED [Concomitant]
  4. ZESTRIL [Concomitant]
     Route: 048
  5. NORVASC [Concomitant]
     Route: 048
  6. LECITHIN [Concomitant]
     Route: 048
  7. CINAL [Concomitant]
     Route: 048
  8. ADALAT [Concomitant]
     Route: 048

REACTIONS (2)
  - GLUCOSE TOLERANCE IMPAIRED [None]
  - HEPATIC FUNCTION ABNORMAL [None]
